FAERS Safety Report 26106868 (Version 1)
Quarter: 2025Q4

REPORT INFORMATION
  Report Type: Spontaneous
  Country: US (occurrence: US)
  Receive Date: 20251201
  Receipt Date: 20251201
  Transmission Date: 20260118
  Serious: Yes (Other)
  Sender: BAYER HEALTHCARE LLC
  Company Number: US-BAYER-2025A152465

PATIENT
  Age: 79 Year
  Sex: Female

DRUGS (1)
  1. BAYER RAPID RELIEF [Suspect]
     Active Substance: ASPIRIN\CAFFEINE
     Indication: Back pain
     Route: 048
     Dates: start: 20251030, end: 20251030

REACTIONS (4)
  - Choking [Recovered/Resolved]
  - Retching [Recovered/Resolved]
  - Nausea [Recovered/Resolved]
  - Drug effect less than expected [Recovered/Resolved]

NARRATIVE: CASE EVENT DATE: 20251030
